FAERS Safety Report 5408188-0 (Version None)
Quarter: 2007Q3

REPORT INFORMATION
  Report Type: 
  Country: None (occurrence: None)
  Receive Date: 20070808
  Receipt Date: 20070806
  Transmission Date: 20080115
  Serious: Yes (Hospitalization)
  Sender: FDA-Public Use
  Company Number: FR-ELI_LILLY_AND_COMPANY-FR200703005614

PATIENT
  Age: 59 Year
  Sex: Male

DRUGS (6)
  1. ZYPREXA [Suspect]
     Indication: BIPOLAR DISORDER
     Dosage: 20 MG, DAILY (1/D)
     Route: 048
     Dates: start: 20070326, end: 20070509
  2. ZYPREXA [Suspect]
     Dosage: 10 MG, DAILY (1/D)
     Route: 048
     Dates: start: 20070509
  3. ZYPREXA [Suspect]
     Dosage: 40 MG, DAILY (1/D)
     Route: 048
     Dates: start: 20070308, end: 20070326
  4. DEPAKOTE [Concomitant]
     Indication: BIPOLAR DISORDER
     Dosage: 3 G, DAILY (1/D)
     Route: 048
     Dates: start: 20070308, end: 20070418
  5. NOCTRAN 10 [Concomitant]
     Indication: BIPOLAR DISORDER
     Dosage: 10 MG, DAILY (1/D)
     Route: 048
     Dates: start: 20070308, end: 20070509
  6. TERCIAN [Concomitant]
     Indication: BIPOLAR DISORDER
     Dosage: 400 MG, DAILY (1/D)
     Route: 048
     Dates: start: 20070308, end: 20070509

REACTIONS (7)
  - HYPOALBUMINAEMIA [None]
  - MALAISE [None]
  - MANIA [None]
  - OVERDOSE [None]
  - PNEUMONIA [None]
  - PROTEINURIA [None]
  - SINUS TACHYCARDIA [None]
